FAERS Safety Report 9444568 (Version 2)
Quarter: 2013Q3

REPORT INFORMATION
  Report Type: Spontaneous
  Country: US (occurrence: US)
  Receive Date: 20130807
  Receipt Date: 20130916
  Transmission Date: 20140515
  Serious: No
  Sender: FDA-Public Use
  Company Number: US-PFIZER INC-2013228576

PATIENT
  Age: 70 Year
  Sex: Female
  Weight: 77.1 kg

DRUGS (4)
  1. LYRICA [Suspect]
     Indication: POST HERPETIC NEURALGIA
     Dosage: 150 MG, 2X/DAY
     Route: 048
     Dates: start: 201210, end: 201210
  2. LYRICA [Suspect]
     Dosage: 150 MG, 2X/DAY
     Route: 048
     Dates: start: 20130701
  3. AMITRIPTYLINE [Concomitant]
     Indication: PAIN
     Dosage: 50 MG, 3X/DAY
     Route: 048
  4. PERCOCET [Concomitant]
     Indication: PAIN
     Dosage: 5 MG, 1X/DAY
     Route: 048
     Dates: start: 1998

REACTIONS (7)
  - Hypersensitivity [Recovered/Resolved]
  - Therapeutic response unexpected [Unknown]
  - Pain [Not Recovered/Not Resolved]
  - Hypoaesthesia [Not Recovered/Not Resolved]
  - Head discomfort [Unknown]
  - Memory impairment [Not Recovered/Not Resolved]
  - Dry mouth [Not Recovered/Not Resolved]
